FAERS Safety Report 8681957 (Version 2)
Quarter: 2012Q4

REPORT INFORMATION
  Report Type: Report from Study
  Country: AT (occurrence: AT)
  Receive Date: 20120725
  Receipt Date: 20120828
  Transmission Date: 20130627
  Serious: Yes (Life-Threatening, Hospitalization)
  Sender: FDA-Public Use
  Company Number: AT-ROCHE-1081464

PATIENT
  Age: 73 Year
  Sex: Male
  Weight: 94 kg

DRUGS (6)
  1. XELODA [Suspect]
     Indication: BRAIN NEOPLASM MALIGNANT
     Route: 048
     Dates: start: 20120424, end: 20120521
  2. XELODA [Suspect]
     Indication: GASTRIC CANCER
  3. OXALIPLATIN [Suspect]
     Indication: BRAIN NEOPLASM MALIGNANT
     Route: 042
     Dates: start: 20120424, end: 20120516
  4. OXALIPLATIN [Suspect]
     Indication: GASTRIC CANCER
  5. FARMORUBICIN [Suspect]
     Indication: BRAIN NEOPLASM MALIGNANT
     Route: 042
     Dates: start: 20120424, end: 20120516
  6. FARMORUBICIN [Suspect]
     Indication: GASTRIC CANCER

REACTIONS (3)
  - Neutropenic sepsis [Recovered/Resolved]
  - Urinary hesitation [Recovered/Resolved]
  - Atrial tachycardia [Recovered/Resolved]
